FAERS Safety Report 20074172 (Version 2)
Quarter: 2021Q4

REPORT INFORMATION
  Report Type: Spontaneous
  Country: BE (occurrence: BE)
  Receive Date: 20211116
  Receipt Date: 20211118
  Transmission Date: 20220303
  Serious: Yes (Disabling)
  Sender: FDA-Public Use
  Company Number: None

PATIENT
  Age: 79 Year
  Sex: Male
  Weight: 82 kg

DRUGS (10)
  1. LEVOFLOXACIN [Suspect]
     Active Substance: LEVOFLOXACIN
     Indication: Urinary tract infection
     Dosage: UNK, (1X/J NO)
     Route: 048
     Dates: start: 20210806, end: 20210811
  2. TIMO COMOD [Concomitant]
     Dosage: 1 DOSAGE FORM, QOD, (1X/J NO)
     Route: 048
     Dates: start: 20210806, end: 20210811
  3. TIMOLOL [Concomitant]
     Active Substance: TIMOLOL
     Dosage: UNK, (1X/J NO)
     Route: 048
     Dates: start: 20210806, end: 20210811
  4. IMOVANE [Concomitant]
     Active Substance: ZOPICLONE
     Dosage: 1 DOSAGE FORM, QD, (1X/J NO)
     Route: 048
     Dates: start: 20210806, end: 20210811
  5. LOSARTAN POTASSIUM [Concomitant]
     Active Substance: LOSARTAN POTASSIUM
     Dosage: 1 DOSAGE FORM, QD, (1X/J NO)
     Route: 048
     Dates: start: 20210806, end: 20210811
  6. MEDROL [Concomitant]
     Active Substance: METHYLPREDNISOLONE
     Dosage: 0.25 DOSAGE FORM, QD, (1X/J NO)
     Route: 048
     Dates: start: 20210806, end: 20210811
  7. ZOCOR [Concomitant]
     Active Substance: SIMVASTATIN
     Dosage: 1 DOSAGE FORM, QD, (1X/J NO)
     Route: 048
     Dates: start: 20210806, end: 20210811
  8. TRAZODONE HYDROCHLORIDE [Concomitant]
     Active Substance: TRAZODONE HYDROCHLORIDE
     Dosage: 1 DOSAGE FORM, QD, (1X/J NO)
     Route: 048
     Dates: start: 20210806, end: 20210811
  9. CALCIUM\CHOLECALCIFEROL [Concomitant]
     Active Substance: CALCIUM\CHOLECALCIFEROL
     Dosage: 1 DOSAGE FORM, QD, (1X/J NO)
     Route: 048
     Dates: start: 20210806, end: 20210811
  10. VALERIAN                           /01561601/ [Concomitant]
     Dosage: 100 MILLIGRAM

REACTIONS (4)
  - Erectile dysfunction [Recovering/Resolving]
  - Gait inability [Recovering/Resolving]
  - Pain [Recovering/Resolving]
  - Tendon pain [Recovering/Resolving]

NARRATIVE: CASE EVENT DATE: 20210808
